FAERS Safety Report 5928961-X (Version None)
Quarter: 2008Q3

REPORT INFORMATION
  Report Type: 
  Country: None (occurrence: None)
  Receive Date: 20080924
  Receipt Date: 20080616
  Transmission Date: 20090109
  Serious: Yes (Other)
  Sender: FDA-Public Use
  Company Number: PHEH2006US08727

PATIENT
  Sex: Female
  Weight: 66.2 kg

DRUGS (6)
  1. COMBIPATCH [Suspect]
     Indication: HORMONE REPLACEMENT THERAPY
     Dosage: TRANSDERMAL
     Route: 062
  2. VIVELLE [Suspect]
     Indication: MENOPAUSAL SYMPTOMS
     Dosage: 0.05 MG
     Dates: start: 20020601, end: 20020801
  3. PROVERA [Suspect]
     Indication: MENOPAUSAL SYMPTOMS
     Dosage: 5 MG
     Dates: start: 19971001, end: 19990601
  4. PREMPRO [Suspect]
     Indication: MENOPAUSAL SYMPTOMS
     Dosage: 0.625 MG
     Dates: start: 19990601, end: 20000701
  5. PREMARIN [Suspect]
     Indication: MENOPAUSAL SYMPTOMS
     Dosage: 0.625 MG
     Dates: start: 19971001, end: 19990601
  6. MEDROXYPROGESTERONE [Suspect]
     Indication: MENOPAUSAL SYMPTOMS
     Dosage: 5 MG
     Dates: start: 19971001, end: 19990601

REACTIONS (5)
  - BREAST CANCER [None]
  - BREAST PAIN [None]
  - MAMMOGRAM ABNORMAL [None]
  - MASTECTOMY [None]
  - NIPPLE DISORDER [None]
